FAERS Safety Report 6714895-X (Version None)
Quarter: 2010Q2

REPORT INFORMATION
  Report Type: 
  Country: None (occurrence: None)
  Receive Date: 20100507
  Receipt Date: 20100428
  Transmission Date: 20101027
  Serious: Yes (Hospitalization, Other)
  Sender: FDA-Public Use
  Company Number: DE-BAYER-201019020GPV

PATIENT
  Age: 43 Year
  Sex: Female
  Weight: 85 kg

DRUGS (3)
  1. MIRENA [Suspect]
     Indication: GENITAL HAEMORRHAGE
     Route: 015
     Dates: start: 20050425
  2. TRENTAL [Concomitant]
     Indication: RETINAL VEIN OCCLUSION
     Route: 048
  3. IBUPROFEN [Concomitant]
     Indication: DRUG USE FOR UNKNOWN INDICATION

REACTIONS (5)
  - CORNEAL STAINING [None]
  - EYE HAEMORRHAGE [None]
  - FACIAL PARESIS [None]
  - RETINAL EXUDATES [None]
  - RETINAL VEIN OCCLUSION [None]
